FAERS Safety Report 8514475-X (Version None)
Quarter: 2012Q3

REPORT INFORMATION
  Report Type: 
  Country: None (occurrence: None)
  Receive Date: 20120717
  Receipt Date: 20120712
  Transmission Date: 20120928
  Serious: Yes (Death)
  Sender: FDA-Public Use
  Company Number: VE-PFIZER INC-2012141366

PATIENT
  Age: 73 Year
  Sex: Male

DRUGS (1)
  1. LIPITOR [Suspect]
     Indication: MYOCARDIAL INFARCTION
     Dosage: 10 MG, 1X/DAY
     Dates: start: 20060101

REACTIONS (1)
  - MYOCARDIAL INFARCTION [None]
